FAERS Safety Report 5207556-X (Version None)
Quarter: 2006Q4

REPORT INFORMATION
  Report Type: 
  Country: None (occurrence: None)
  Receive Date: 20061030
  Receipt Date: 20060705
  Transmission Date: 20070319
  Serious: No
  Sender: FDA-Public Use
  Company Number: 255612

PATIENT
  Age: 77 Year
  Sex: Male
  Weight: 120.2 kg

DRUGS (3)
  1. LEVEMIR [Suspect]
     Indication: INSULIN-REQUIRING TYPE II DIABETES MELLITUS
     Dosage: 7 IU,QD,SUBCUTANEOUS
     Route: 058
     Dates: start: 20060501
  2. GLUCOPHAGE/00082701/)(METFORMIN) [Concomitant]
  3. PRANDIN (REPAGLINIDE) TABLET [Concomitant]

REACTIONS (1)
  - BLOOD GLUCOSE INCREASED [None]
